FAERS Safety Report 5639065-8 (Version None)
Quarter: 2008Q1

REPORT INFORMATION
  Report Type: 
  Country: None (occurrence: None)
  Receive Date: 20080226
  Receipt Date: 20070502
  Transmission Date: 20080703
  Serious: No
  Sender: FDA-Public Use
  Company Number: US-BAUSCH-2007BL001436

PATIENT
  Sex: Male

DRUGS (2)
  1. FLUNISOLIDE NASAL SOLUTION USP 0.025% [Suspect]
     Indication: SINUS DISORDER
     Route: 045
     Dates: start: 20061101
  2. ASPIRIN [Concomitant]
     Indication: ARTHRALGIA
     Dates: start: 20070401

REACTIONS (1)
  - DRUG SCREEN POSITIVE [None]
